FAERS Safety Report 6781796-0 (Version None)
Quarter: 2010Q2

REPORT INFORMATION
  Report Type: 
  Country: None (occurrence: None)
  Receive Date: 20100621
  Receipt Date: 20100611
  Transmission Date: 20101027
  Serious: Yes (Other)
  Sender: FDA-Public Use
  Company Number: US-JNJFOC-20100603611

PATIENT
  Age: 17 Month
  Sex: Female
  Weight: 11.79 kg

DRUGS (4)
  1. CONCENTRATED TYLENOL INFANT DROPS [Suspect]
     Route: 048
  2. CONCENTRATED TYLENOL INFANT DROPS [Suspect]
     Indication: TEETHING
     Route: 048
  3. CONCENTRATED MOTRIN INFANTS DROPS [Suspect]
     Route: 065
  4. CONCENTRATED MOTRIN INFANTS DROPS [Suspect]
     Indication: DRUG USE FOR UNKNOWN INDICATION
     Route: 065

REACTIONS (5)
  - BACTERIAL INFECTION [None]
  - PRODUCT QUALITY ISSUE [None]
  - RASH [None]
  - RESPIRATORY DISORDER [None]
  - SKIN REACTION [None]
